FAERS Safety Report 7867022-X (Version None)
Quarter: 2011Q4

REPORT INFORMATION
  Report Type: 
  Country: None (occurrence: None)
  Receive Date: 20111026
  Receipt Date: 20111011
  Transmission Date: 20120403
  Serious: Yes (Hospitalization)
  Sender: FDA-Public Use
  Company Number: 2011MA014998

PATIENT
  Age: 59 Year
  Sex: Female

DRUGS (2)
  1. PANTOPRAZOLE SODIUM [Suspect]
  2. TELMISARTAN [Suspect]

REACTIONS (5)
  - HYPERHIDROSIS [None]
  - HYPONATRAEMIA [None]
  - DISCOMFORT [None]
  - TINNITUS [None]
  - HEADACHE [None]
